FAERS Safety Report 5737784-6 (Version None)
Quarter: 2008Q2

REPORT INFORMATION
  Report Type: 
  Country: None (occurrence: None)
  Receive Date: 20080514
  Receipt Date: 20080508
  Transmission Date: 20081010
  Serious: Yes (Hospitalization, Disabling, Other)
  Sender: FDA-Public Use
  Company Number: US-MERCK-0705USA01338

PATIENT
  Age: 69 Year
  Sex: Male

DRUGS (5)
  1. FOSAMAX [Suspect]
     Indication: RESORPTION BONE INCREASED
     Route: 048
     Dates: start: 20050601, end: 20060601
  2. PRAVASTATIN SODIUM [Concomitant]
     Indication: BLOOD CHOLESTEROL INCREASED
     Route: 065
     Dates: start: 20020101
  3. NASACORT [Concomitant]
     Indication: HYPERSENSITIVITY
     Route: 065
     Dates: start: 20020101
  4. ACIPHEX [Concomitant]
     Route: 065
     Dates: start: 20020101
  5. TERAZOSIN HYDROCHLORIDE [Concomitant]
     Indication: MICTURITION DISORDER
     Route: 065
     Dates: start: 20020101

REACTIONS (18)
  - ADVERSE EVENT [None]
  - BILE DUCT OBSTRUCTION [None]
  - BILE DUCT STONE [None]
  - CARDIAC MURMUR [None]
  - CHEST PAIN [None]
  - CHILLS [None]
  - CHOLECYSTITIS CHRONIC [None]
  - DRUG ADMINISTRATION ERROR [None]
  - ENDOCARDITIS [None]
  - ERECTILE DYSFUNCTION [None]
  - GALLBLADDER CANCER [None]
  - INSOMNIA [None]
  - JAW CYST [None]
  - OSTEONECROSIS [None]
  - PANCREATIC CARCINOMA [None]
  - RESORPTION BONE INCREASED [None]
  - TREMOR [None]
  - URINARY TRACT INFECTION [None]
